FAERS Safety Report 12902013 (Version 2)
Quarter: 2016Q4

REPORT INFORMATION
  Report Type: Report from Study
  Country: CA (occurrence: CA)
  Receive Date: 20161102
  Receipt Date: 20161129
  Transmission Date: 20170207
  Serious: Yes (Hospitalization)
  Sender: FDA-Public Use
  Company Number: PHHY2016CA120709

PATIENT
  Age: 73 Year
  Sex: Female

DRUGS (2)
  1. TAFINLAR [Suspect]
     Active Substance: DABRAFENIB MESYLATE
     Indication: METASTATIC MALIGNANT MELANOMA
     Dosage: 100 MG, QD
     Route: 048
     Dates: start: 20160622, end: 20161123
  2. MEKINIST [Suspect]
     Active Substance: TRAMETINIB DIMETHYL SULFOXIDE
     Indication: METASTATIC MALIGNANT MELANOMA
     Dosage: 1.5 MG, QD
     Route: 048
     Dates: start: 20160622, end: 20161123

REACTIONS (6)
  - Upper limb fracture [Unknown]
  - Fall [Unknown]
  - Malaise [Unknown]
  - Diarrhoea [Unknown]
  - Anal incontinence [Unknown]
  - Mobility decreased [Unknown]

NARRATIVE: CASE EVENT DATE: 20161025
